FAERS Safety Report 7133889-6 (Version None)
Quarter: 2010Q4

REPORT INFORMATION
  Report Type: 
  Country: None (occurrence: None)
  Receive Date: 20101203
  Receipt Date: 20101108
  Transmission Date: 20110411
  Serious: Yes (Hospitalization, Other)
  Sender: FDA-Public Use
  Company Number: US-BAYER-201031209NA

PATIENT

DRUGS (2)
  1. YAZ [Suspect]
     Indication: CONTRACEPTION
     Route: 048
     Dates: start: 20060701, end: 20080201
  2. YASMIN [Suspect]

REACTIONS (5)
  - BILE DUCT STONE [None]
  - CHOLECYSTECTOMY [None]
  - CHOLELITHIASIS [None]
  - CHOLESTEROSIS [None]
  - WEIGHT DECREASED [None]
